FAERS Safety Report 15645849 (Version 1)
Quarter: 2018Q4

REPORT INFORMATION
  Report Type: Spontaneous
  Country: CN (occurrence: CN)
  Receive Date: 20181121
  Receipt Date: 20181121
  Transmission Date: 20190205
  Serious: Yes (Hospitalization)
  Sender: FDA-Public Use
  Company Number: PHHY2018CN159329

PATIENT

DRUGS (2)
  1. TEGRETOL [Suspect]
     Active Substance: CARBAMAZEPINE
     Indication: HYPOAESTHESIA ORAL
     Dosage: 0.1 G, BID
     Route: 048
     Dates: start: 20181004, end: 20181019
  2. TEGRETOL [Suspect]
     Active Substance: CARBAMAZEPINE
     Dosage: 0.1 G, UNK
     Route: 048
     Dates: end: 20181024

REACTIONS (8)
  - Product use in unapproved indication [Unknown]
  - Pain [Recovered/Resolved]
  - Dysphagia [Unknown]
  - Feeling hot [Unknown]
  - Mouth ulceration [Recovered/Resolved]
  - Swelling [Unknown]
  - Erythema [Recovered/Resolved]
  - Pruritus [Recovered/Resolved]

NARRATIVE: CASE EVENT DATE: 20181019
